FAERS Safety Report 13047193 (Version 2)
Quarter: 2017Q1

REPORT INFORMATION
  Report Type: Spontaneous
  Country: US (occurrence: US)
  Receive Date: 20161220
  Receipt Date: 20170110
  Transmission Date: 20170428
  Serious: Yes (Death, Other)
  Sender: FDA-Public Use
  Company Number: US-BRISTOL-MYERS SQUIBB COMPANY-BMS-2016-107018

PATIENT
  Sex: Female

DRUGS (1)
  1. OPDIVO [Suspect]
     Active Substance: NIVOLUMAB
     Indication: OVARIAN CANCER
     Dosage: 3 MG/KG, Q2WK
     Route: 042

REACTIONS (6)
  - Malignant neoplasm progression [Fatal]
  - Hypokalaemia [Unknown]
  - Product use issue [Unknown]
  - Malnutrition [Unknown]
  - Small intestinal obstruction [Fatal]
  - Cardiac arrest [Unknown]
